FAERS Safety Report 7918193-8 (Version None)
Quarter: 2011Q4

REPORT INFORMATION
  Report Type: 
  Country: None (occurrence: None)
  Receive Date: 20111116
  Receipt Date: 20111111
  Transmission Date: 20120403
  Serious: Yes (Death)
  Sender: FDA-Public Use
  Company Number: US-GLAXOSMITHKLINE-A0725728A

PATIENT
  Age: 63 Year
  Sex: Male
  Weight: 103.6 kg

DRUGS (4)
  1. AMARYL [Concomitant]
     Dates: start: 20010126, end: 20060505
  2. METFORMIN HCL [Concomitant]
  3. AVANDIA [Suspect]
     Indication: TYPE 2 DIABETES MELLITUS
     Dosage: 4MG PER DAY
     Route: 048
     Dates: start: 20021203, end: 20060505
  4. GLUCOPHAGE [Concomitant]
     Dates: start: 20001109, end: 20060505

REACTIONS (3)
  - CARDIAC ARREST [None]
  - HEART INJURY [None]
  - ARRHYTHMIA [None]
